FAERS Safety Report 6117781-1 (Version None)
Quarter: 2009Q1

REPORT INFORMATION
  Report Type: 
  Country: None (occurrence: None)
  Receive Date: 20090314
  Receipt Date: 20090128
  Transmission Date: 20090719
  Serious: No
  Sender: FDA-Public Use
  Company Number: US-ABBOTT-09P-163-0500644-00

PATIENT
  Sex: Female
  Weight: 68.554 kg

DRUGS (1)
  1. HUMIRA [Suspect]
     Indication: RHEUMATOID ARTHRITIS
     Dates: start: 20080101, end: 20081001

REACTIONS (3)
  - FUNGAL INFECTION [None]
  - VULVOVAGINAL DRYNESS [None]
  - VULVOVAGINAL PRURITUS [None]
